FAERS Safety Report 11078825 (Version 1)
Quarter: 2015Q2

REPORT INFORMATION
  Report Type: Spontaneous
  Country: US (occurrence: None)
  Receive Date: 20150429
  Receipt Date: 20150429
  Transmission Date: 20150821
  Serious: Yes (Other)
  Sender: FDA-Public Use
  Company Number: None

PATIENT
  Age: 43 Year
  Sex: Male

DRUGS (1)
  1. SIMPONI [Suspect]
     Active Substance: GOLIMUMAB
     Indication: CROHN^S DISEASE
     Dosage: SUBCUTANEOUS   INJECTABLE EVERY 4 WEEKS
     Route: 058
     Dates: start: 201410

REACTIONS (1)
  - Therapy responder [None]

NARRATIVE: CASE EVENT DATE: 20150428
